FAERS Safety Report 6506113-2 (Version None)
Quarter: 2009Q4

REPORT INFORMATION
  Report Type: 
  Country: None (occurrence: None)
  Receive Date: 20091217
  Receipt Date: 20091217
  Transmission Date: 20100525
  Serious: Yes (Life-Threatening)
  Sender: FDA-Public Use
  Company Number: None

PATIENT
  Age: 48 Year
  Sex: Female
  Weight: 56.6996 kg

DRUGS (1)
  1. PAROXETINE HCL [Suspect]
     Indication: DEPRESSION
     Dosage: 20MG. PER DAY 1 20MG. PILL/DAY
     Dates: start: 20080820, end: 20091216

REACTIONS (6)
  - DEPRESSION [None]
  - HYPERHIDROSIS [None]
  - INFLUENZA [None]
  - PARAESTHESIA [None]
  - SUICIDAL IDEATION [None]
  - WITHDRAWAL SYNDROME [None]
